FAERS Safety Report 8831247 (Version 2)
Quarter: 2013Q2

REPORT INFORMATION
  Report Type: Report from Study
  Country: BR (occurrence: BR)
  Receive Date: 20121009
  Receipt Date: 20130502
  Transmission Date: 20140414
  Serious: Yes (Hospitalization)
  Sender: FDA-Public Use
  Company Number: PHHY2012BR088089

PATIENT
  Sex: Female

DRUGS (2)
  1. TRILEPTAL [Suspect]
     Indication: DYSMORPHISM
     Dosage: 6% 100 ML SUSPENSION AT 3 ML IN MORNING + 3 ML AT NIGHT
     Route: 048
  2. TRILEPTAL [Suspect]
     Indication: EPILEPSY
     Dosage: 6% 100 ML SUSPENSION AT 3 ML IN MORNING + 3 ML AT NIGHT
     Route: 048

REACTIONS (4)
  - Balance disorder [Recovered/Resolved]
  - Nervousness [Recovered/Resolved]
  - Palpitations [Recovered/Resolved]
  - Convulsion [Recovered/Resolved]
